FAERS Safety Report 4304564-8 (Version None)
Quarter: 2004Q1

REPORT INFORMATION
  Report Type: 
  Country: None (occurrence: None)
  Receive Date: 20040224
  Receipt Date: 20040213
  Transmission Date: 20041129
  Serious: Yes (Hospitalization)
  Sender: FDA-Public Use
  Company Number: EMADSS2003001873

PATIENT
  Age: 51 Year
  Sex: Female

DRUGS (8)
  1. REMICADE [Suspect]
     Indication: PSORIATIC ARTHROPATHY
     Dosage: 300 MG, 1 IN 1 AS NECESSARY, INTRAVENOUS DRIP; 300 MG, INTRAVENOUS DRIP
     Route: 041
     Dates: start: 19991228, end: 19991228
  2. REMICADE [Suspect]
     Indication: PSORIATIC ARTHROPATHY
     Dosage: 300 MG, 1 IN 1 AS NECESSARY, INTRAVENOUS DRIP; 300 MG, INTRAVENOUS DRIP
     Route: 041
     Dates: start: 20000427, end: 20000427
  3. ZOLOFT [Suspect]
     Indication: MAJOR DEPRESSION
     Dosage: 2 MG, 2 IN 1 DAY, ORAL
     Route: 048
     Dates: start: 19991101, end: 20000430
  4. OMEPRAZOLE [Suspect]
     Dosage: 20 MG, ORAL
     Route: 048
     Dates: start: 19991207, end: 20000507
  5. VIOXX [Suspect]
     Indication: PSORIATIC ARTHROPATHY
     Dosage: 25 MG, ORAL
     Route: 048
     Dates: start: 19991207, end: 20000507
  6. METHOTREXATE [Suspect]
     Indication: PSORIATIC ARTHROPATHY
     Dosage: 7.5 MG, 1 IN 1 WEEK, ORAL
     Route: 048
     Dates: end: 20000430
  7. FOLACIN (FOLACIN) [Concomitant]
  8. GLYBURIDE [Concomitant]

REACTIONS (8)
  - CHOLANGITIS ACUTE [None]
  - DECREASED APPETITE [None]
  - GAMMA-GLUTAMYLTRANSFERASE INCREASED [None]
  - HEPATIC CIRRHOSIS [None]
  - HEPATIC FIBROSIS [None]
  - HEPATIC STEATOSIS [None]
  - MUSCLE ATROPHY [None]
  - VASCULITIS [None]
